FAERS Safety Report 24839686 (Version 2)
Quarter: 2025Q1

REPORT INFORMATION
  Report Type: Spontaneous
  Country: AU (occurrence: AU)
  Receive Date: 20250114
  Receipt Date: 20250117
  Transmission Date: 20250409
  Serious: Yes (Other)
  Sender: ROCHE
  Company Number: AU-ROCHE-10000176886

PATIENT
  Sex: Female
  Weight: 70.0 kg

DRUGS (2)
  1. RITUXIMAB [Suspect]
     Active Substance: RITUXIMAB
     Indication: Neuromyelitis optica spectrum disorder
     Route: 065
  2. GAZYVA [Suspect]
     Active Substance: OBINUTUZUMAB
     Indication: Systemic lupus erythematosus
     Dosage: 1000MG  EVERY 2 WEEKS INDUCTION THE 500MG 6 MONTHLY FOR?2 YEARS
     Route: 042

REACTIONS (3)
  - Angioedema [Unknown]
  - Drug hypersensitivity [Unknown]
  - Off label use [Unknown]
